FAERS Safety Report 6027846-0 (Version None)
Quarter: 2009Q1

REPORT INFORMATION
  Report Type: 
  Country: None (occurrence: None)
  Receive Date: 20090105
  Receipt Date: 20081216
  Transmission Date: 20090719
  Serious: No
  Sender: FDA-Public Use
  Company Number: US-B.I. PHARMACEUTICALS,INC./RIDGEFIELD-2008-BP-17457BP

PATIENT
  Sex: Male

DRUGS (12)
  1. SPIRIVA [Suspect]
     Indication: CHRONIC OBSTRUCTIVE PULMONARY DISEASE
     Dosage: 18MCG
     Route: 055
     Dates: start: 20081023, end: 20081114
  2. SPIRIVA [Suspect]
     Indication: DYSPNOEA
  3. LASIX [Concomitant]
     Indication: CARDIAC DISORDER
  4. POTASSIUM CHLORIDE [Concomitant]
     Indication: CARDIAC DISORDER
  5. LIPITOR [Concomitant]
     Indication: BLOOD CHOLESTEROL INCREASED
  6. AVAPRO [Concomitant]
     Indication: HYPERTENSION
  7. ALLOPURINOL [Concomitant]
     Indication: GOUT
  8. SYNTHROID [Concomitant]
     Indication: HYPOTHYROIDISM
  9. COUMADIN [Concomitant]
     Indication: CARDIAC DISORDER
  10. RESTOR [Concomitant]
  11. INDOCIN [Concomitant]
     Indication: GOUT
  12. NITROGLYCERIN [Concomitant]
     Indication: CARDIAC DISORDER

REACTIONS (5)
  - DRY THROAT [None]
  - DYSPHONIA [None]
  - MUSCLE SPASMS [None]
  - OROPHARYNGEAL PAIN [None]
  - VISION BLURRED [None]
